FAERS Safety Report 17747119 (Version 1)
Quarter: 2020Q2

REPORT INFORMATION
  Report Type: Spontaneous
  Country: US (occurrence: US)
  Receive Date: 20200505
  Receipt Date: 20200505
  Transmission Date: 20200714
  Serious: Yes (Other)
  Sender: FDA-Public Use
  Company Number: US-MYLANLABS-2020M1044505

PATIENT
  Age: 76 Year
  Sex: Male

DRUGS (9)
  1. FENTANYL TRANSDERMAL SYSTEM [Suspect]
     Active Substance: FENTANYL
     Dosage: UNK
     Route: 062
     Dates: start: 202001
  2. FENTANYL. [Suspect]
     Active Substance: FENTANYL
     Indication: CANCER PAIN
     Dosage: UNK
     Route: 062
     Dates: start: 20200101
  3. FENTANYL. [Suspect]
     Active Substance: FENTANYL
     Dosage: UNK
     Route: 062
     Dates: start: 20200416
  4. FENTANYL TRANSDERMAL SYSTEM [Suspect]
     Active Substance: FENTANYL
     Dosage: UNK
     Route: 062
     Dates: start: 20200416
  5. FENTANYL TRANSDERMAL SYSTEM [Suspect]
     Active Substance: FENTANYL
     Dosage: UNK
     Route: 062
     Dates: start: 202002
  6. FENTANYL. [Suspect]
     Active Substance: FENTANYL
     Dosage: UNK
     Route: 062
     Dates: start: 202002
  7. FENTANYL TRANSDERMAL SYSTEM [Suspect]
     Active Substance: FENTANYL
     Indication: CANCER PAIN
     Dosage: UNK
     Route: 062
     Dates: start: 20200101
  8. FENTANYL. [Suspect]
     Active Substance: FENTANYL
     Dosage: UNK
     Route: 062
     Dates: start: 202001
  9. PEMBROLIZUMAB. [Suspect]
     Active Substance: PEMBROLIZUMAB
     Indication: PRODUCT USED FOR UNKNOWN INDICATION
     Dosage: UNK

REACTIONS (2)
  - Metastases to spine [Recovering/Resolving]
  - Adverse event [Not Recovered/Not Resolved]

NARRATIVE: CASE EVENT DATE: 20200101
